FAERS Safety Report 13111085 (Version 1)
Quarter: 2017Q1

REPORT INFORMATION
  Report Type: Spontaneous
  Country: CH (occurrence: CH)
  Receive Date: 20170112
  Receipt Date: 20170112
  Transmission Date: 20170428
  Serious: Yes (Other)
  Sender: FDA-Public Use
  Company Number: CH-ELI_LILLY_AND_COMPANY-CH201701004158

PATIENT
  Age: 28 Year
  Sex: Male
  Weight: 72 kg

DRUGS (18)
  1. TEMESTA                            /00273201/ [Suspect]
     Active Substance: LORAZEPAM
     Dosage: 2.5 MG, UNKNOWN
     Route: 065
     Dates: start: 20160903, end: 20160905
  2. TEMESTA                            /00273201/ [Suspect]
     Active Substance: LORAZEPAM
     Dosage: 1.5 MG, UNKNOWN
     Route: 065
     Dates: start: 20160907, end: 20160908
  3. TEMESTA                            /00273201/ [Suspect]
     Active Substance: LORAZEPAM
     Dosage: 1 MG, UNKNOWN
     Route: 065
     Dates: start: 20160909, end: 20160919
  4. STILNOX [Suspect]
     Active Substance: ZOLPIDEM TARTRATE
     Indication: PRODUCT USED FOR UNKNOWN INDICATION
     Dosage: 12.5 MG, UNKNOWN
     Route: 065
     Dates: start: 20160909
  5. VENLAFAXIN [Suspect]
     Active Substance: VENLAFAXINE HYDROCHLORIDE
     Indication: PRODUCT USED FOR UNKNOWN INDICATION
     Dosage: 150 MG, UNKNOWN
     Route: 065
     Dates: start: 20160818, end: 20160826
  6. TEMESTA                            /00273201/ [Suspect]
     Active Substance: LORAZEPAM
     Dosage: 3.5 MG, UNKNOWN
     Route: 065
     Dates: start: 20160824, end: 20160825
  7. DEKRISTOL [Concomitant]
     Active Substance: CHOLECALCIFEROL
     Indication: PRODUCT USED FOR UNKNOWN INDICATION
     Dosage: 20000 IU, UNK
     Dates: start: 20160808, end: 20161004
  8. TRITTICO [Concomitant]
     Active Substance: TRAZODONE HYDROCHLORIDE
     Indication: PRODUCT USED FOR UNKNOWN INDICATION
     Dosage: 100 MG, UNKNOWN
     Route: 065
     Dates: start: 20160905, end: 20160908
  9. CYMBALTA [Suspect]
     Active Substance: DULOXETINE HYDROCHLORIDE
     Indication: PRODUCT USED FOR UNKNOWN INDICATION
     Dosage: 60 MG, UNKNOWN
     Route: 065
     Dates: start: 20160919, end: 20160921
  10. TEMESTA                            /00273201/ [Suspect]
     Active Substance: LORAZEPAM
     Indication: PRODUCT USED FOR UNKNOWN INDICATION
     Dosage: 3 MG, UNKNOWN
     Route: 065
     Dates: start: 20160817, end: 20160823
  11. REMERON [Suspect]
     Active Substance: MIRTAZAPINE
     Dosage: 30 MG, UNKNOWN
     Route: 065
     Dates: start: 20160826, end: 20160908
  12. REMERON [Suspect]
     Active Substance: MIRTAZAPINE
     Dosage: 45 MG, UNKNOWN
     Route: 065
     Dates: start: 20160909
  13. VENLAFAXIN [Suspect]
     Active Substance: VENLAFAXINE HYDROCHLORIDE
     Dosage: 225 MG, UNKNOWN
     Route: 065
     Dates: start: 20160827, end: 20160918
  14. QUILONORM                          /00033702/ [Concomitant]
     Active Substance: LITHIUM CARBONATE
     Indication: PRODUCT USED FOR UNKNOWN INDICATION
     Dosage: 30.5 MMOL, UNKNOWN
     Route: 065
     Dates: start: 20160916
  15. REMERON [Suspect]
     Active Substance: MIRTAZAPINE
     Indication: PRODUCT USED FOR UNKNOWN INDICATION
     Dosage: 15 MG, UNKNOWN
     Route: 065
     Dates: start: 20160824, end: 20160825
  16. TEMESTA                            /00273201/ [Suspect]
     Active Substance: LORAZEPAM
     Dosage: 2 MG, UNKNOWN
     Route: 065
     Dates: start: 20160906, end: 20160906
  17. TRUXAL                             /00012102/ [Suspect]
     Active Substance: CHLORPROTHIXENE
     Indication: PRODUCT USED FOR UNKNOWN INDICATION
     Dosage: 50 MG, UNKNOWN
     Route: 065
     Dates: start: 20160826
  18. TEMESTA                            /00273201/ [Suspect]
     Active Substance: LORAZEPAM
     Dosage: 1.5 MG, UNKNOWN
     Route: 065
     Dates: start: 20160826, end: 20160902

REACTIONS (2)
  - Alanine aminotransferase increased [Recovering/Resolving]
  - Aspartate aminotransferase increased [Recovered/Resolved]

NARRATIVE: CASE EVENT DATE: 20160914
